FAERS Safety Report 6075682-1 (Version None)
Quarter: 2009Q1

REPORT INFORMATION
  Report Type: 
  Country: None (occurrence: None)
  Receive Date: 20090121
  Receipt Date: 20080318
  Transmission Date: 20090719
  Serious: Yes (Other)
  Sender: FDA-Public Use
  Company Number: US-WYE-H03171008

PATIENT
  Sex: Female

DRUGS (1)
  1. PREMPRO [Suspect]
     Dates: start: 19880101, end: 20020101

REACTIONS (2)
  - ALOPECIA [None]
  - THROMBOSIS [None]
